FAERS Safety Report 7726546-6 (Version None)
Quarter: 2011Q3

REPORT INFORMATION
  Report Type: 
  Country: None (occurrence: None)
  Receive Date: 20110902
  Receipt Date: 20110829
  Transmission Date: 20111222
  Serious: Yes (Life-Threatening, Other)
  Sender: FDA-Public Use
  Company Number: US-ASTRAZENECA-2011SE51455

PATIENT
  Age: 51 Year
  Sex: Female
  Weight: 49 kg

DRUGS (7)
  1. KLONOPIN [Concomitant]
  2. SEROQUEL [Suspect]
     Indication: ANXIETY
     Route: 048
     Dates: start: 20050101
  3. LITHIUM CARBONATE [Concomitant]
  4. SEROQUEL [Suspect]
     Indication: SLEEP DISORDER
     Route: 048
     Dates: start: 20050101
  5. SEROQUEL [Suspect]
     Route: 048
  6. SEROQUEL [Suspect]
     Route: 048
  7. PROZAC [Concomitant]

REACTIONS (7)
  - CONVULSION [None]
  - DEPRESSION [None]
  - DRUG DOSE OMISSION [None]
  - BODY MASS INDEX DECREASED [None]
  - MEMORY IMPAIRMENT [None]
  - OFF LABEL USE [None]
  - WEIGHT DECREASED [None]
